FAERS Safety Report 19294517 (Version 1)
Quarter: 2021Q2

REPORT INFORMATION
  Report Type: Spontaneous
  Country: US (occurrence: US)
  Receive Date: 20210524
  Receipt Date: 20210524
  Transmission Date: 20210717
  Serious: No
  Sender: FDA-Public Use
  Company Number: US-JNJFOC-20210532167

PATIENT
  Sex: Female

DRUGS (1)
  1. MENS ROGAINE EXTRA STRENGTH [Suspect]
     Active Substance: MINOXIDIL
     Indication: PRODUCT USED FOR UNKNOWN INDICATION
     Dosage: 2X PER DAY
     Route: 061

REACTIONS (5)
  - Intentional product misuse [Unknown]
  - Product storage error [Unknown]
  - Product formulation issue [Unknown]
  - Wrong technique in product usage process [Unknown]
  - Product use issue [Unknown]
